FAERS Safety Report 4876881-4 (Version None)
Quarter: 2006Q1

REPORT INFORMATION
  Report Type: 
  Country: None (occurrence: None)
  Receive Date: 20060109
  Receipt Date: 20060109
  Transmission Date: 20060701
  Serious: Yes (Death)
  Sender: FDA-Public Use
  Company Number: None

PATIENT
  Age: 71 Year
  Sex: Male
  Weight: 72.5755 kg

DRUGS (1)
  1. ANDROGEL [Suspect]
     Dosage: ONCE DAILY

REACTIONS (1)
  - PROSTATE CANCER STAGE IV [None]
